FAERS Safety Report 6042403-8 (Version None)
Quarter: 2009Q1

REPORT INFORMATION
  Report Type: 
  Country: None (occurrence: None)
  Receive Date: 20090116
  Receipt Date: 20090115
  Transmission Date: 20090719
  Serious: Yes (Life-Threatening, Hospitalization)
  Sender: FDA-Public Use
  Company Number: CA-ASTRAZENECA-2009UW01289

PATIENT
  Age: 30 Year
  Sex: Male
  Weight: 63.5 kg

DRUGS (3)
  1. SEROQUEL [Suspect]
     Dosage: 100MG
     Route: 048
  2. CLONAZEPAM [Concomitant]
  3. EFFEXOR XR [Concomitant]

REACTIONS (7)
  - ERYTHEMA [None]
  - HYPERHIDROSIS [None]
  - MALAISE [None]
  - TREMOR [None]
  - TYPE 1 DIABETES MELLITUS [None]
  - VISION BLURRED [None]
  - WEIGHT CONTROL [None]
